FAERS Safety Report 10908297 (Version 1)
Quarter: 2015Q1

REPORT INFORMATION
  Report Type: Spontaneous
  Country: IN (occurrence: None)
  Receive Date: 20150309
  Receipt Date: 20150309
  Transmission Date: 20150721
  Serious: Yes (Hospitalization)
  Sender: FDA-Public Use
  Company Number: 2015JUB00057

PATIENT
  Age: 50 Year
  Sex: Female

DRUGS (4)
  1. SODIUM VALPROATE (SODIUM VALPROATE) [Suspect]
     Active Substance: VALPROATE SODIUM
     Indication: SCHIZOAFFECTIVE DISORDER
  2. ZUCLOPENTHIXOL [Suspect]
     Active Substance: ZUCLOPENTHIXOL
     Indication: SCHIZOAFFECTIVE DISORDER
  3. RISPERIDONE (RISPERIDONE) [Suspect]
     Active Substance: RISPERIDONE
     Indication: SCHIZOAFFECTIVE DISORDER
     Dosage: OD
  4. THP (UNSPECIFIED0 [Concomitant]

REACTIONS (6)
  - Tremor [None]
  - Hyperammonaemia [None]
  - Vomiting [None]
  - Asthenia [None]
  - Decreased appetite [None]
  - Drug interaction [None]
